FAERS Safety Report 6715558-7 (Version None)
Quarter: 2010Q2

REPORT INFORMATION
  Report Type: 
  Country: None (occurrence: None)
  Receive Date: 20100507
  Receipt Date: 20100426
  Transmission Date: 20101027
  Serious: Yes (Other)
  Sender: FDA-Public Use
  Company Number: PHHY2010BR27136

PATIENT
  Sex: Female

DRUGS (2)
  1. DIOVAN HCT [Suspect]
     Dosage: 160/12.5 MG, UNK
     Route: 048
  2. DIOVAN HCT [Suspect]
     Dosage: (160/12.5 MG) 1 TABLET EVERY 8 HOURS

REACTIONS (2)
  - BLOOD PRESSURE INCREASED [None]
  - INFARCTION [None]
